FAERS Safety Report 12780076 (Version 1)
Quarter: 2016Q3

REPORT INFORMATION
  Report Type: Spontaneous
  Country: US (occurrence: US)
  Receive Date: 20160926
  Receipt Date: 20160926
  Transmission Date: 20161109
  Serious: No
  Sender: FDA-Public Use
  Company Number: None

PATIENT
  Age: 75 Year
  Sex: Male
  Weight: 122.47 kg

DRUGS (15)
  1. CRESTOR [Concomitant]
     Active Substance: ROSUVASTATIN CALCIUM
  2. HYDRALAZINE [Concomitant]
     Active Substance: HYDRALAZINE HYDROCHLORIDE
  3. FISH OIL [Concomitant]
     Active Substance: FISH OIL
  4. MULTI VITS [Concomitant]
     Active Substance: VITAMINS
  5. METOPROLOL. [Concomitant]
     Active Substance: METOPROLOL
  6. IRON [Concomitant]
     Active Substance: IRON
  7. IBUPROFEN. [Concomitant]
     Active Substance: IBUPROFEN
  8. RENVELLA [Concomitant]
  9. ASPIRIN. [Concomitant]
     Active Substance: ASPIRIN
  10. STOOL SOFTNER [Concomitant]
     Active Substance: DOCUSATE SODIUM
  11. PARICALCITOL. [Concomitant]
     Active Substance: PARICALCITOL
  12. AMLODIPINE BESYLATE. [Concomitant]
     Active Substance: AMLODIPINE BESYLATE
  13. SENSIPAR [Suspect]
     Active Substance: CINACALCET HYDROCHLORIDE
     Indication: HYPERPARATHYROIDISM
     Dosage: 1 PILL ONCE DAILY BY MOUTH
     Route: 048
     Dates: start: 20160815, end: 20160819
  14. JANUVIA [Concomitant]
     Active Substance: SITAGLIPTIN PHOSPHATE
  15. VITAMIN D3 [Concomitant]
     Active Substance: CHOLECALCIFEROL

REACTIONS (4)
  - Therapy cessation [None]
  - Nausea [None]
  - Insomnia [None]
  - Vomiting [None]

NARRATIVE: CASE EVENT DATE: 20160815
